FAERS Safety Report 8548826-7 (Version None)
Quarter: 2012Q3

REPORT INFORMATION
  Report Type: 
  Country: None (occurrence: None)
  Receive Date: 20120730
  Receipt Date: 20120719
  Transmission Date: 20120928
  Serious: Yes (Other)
  Sender: FDA-Public Use
  Company Number: JP-BRISTOL-MYERS SQUIBB COMPANY-16807216

PATIENT
  Age: 34 Year
  Sex: Female

DRUGS (1)
  1. ABILIFY [Suspect]
     Dosage: ABILIFY TABS 3 MG
     Route: 048
     Dates: start: 20120621

REACTIONS (2)
  - ABORTION [None]
  - PREGNANCY [None]
